FAERS Safety Report 13549849 (Version 1)
Quarter: 2017Q2

REPORT INFORMATION
  Report Type: Spontaneous
  Country: BG (occurrence: BG)
  Receive Date: 20170516
  Receipt Date: 20170516
  Transmission Date: 20170830
  Serious: Yes (Other)
  Sender: FDA-Public Use
  Company Number: BG-INCYTE CORPORATION-2017IN003706

PATIENT

DRUGS (1)
  1. JAKAVI [Suspect]
     Active Substance: RUXOLITINIB
     Indication: MYELOFIBROSIS
     Dosage: 15 MG, BID
     Route: 048
     Dates: start: 20160525, end: 20170305

REACTIONS (2)
  - Renal cancer [Unknown]
  - Second primary malignancy [Unknown]

NARRATIVE: CASE EVENT DATE: 201703
